FAERS Safety Report 24093103 (Version 1)
Quarter: 2024Q3

REPORT INFORMATION
  Report Type: Spontaneous
  Country: US (occurrence: US)
  Receive Date: 20240715
  Receipt Date: 20240715
  Transmission Date: 20241017
  Serious: Yes (Hospitalization, Disabling, Other)
  Sender: DR REDDYS
  Company Number: None

PATIENT
  Age: 41 Year
  Sex: Male

DRUGS (3)
  1. CIPROFLOXACIN HYDROCHLORIDE [Suspect]
     Active Substance: CIPROFLOXACIN HYDROCHLORIDE
     Indication: Epididymitis
     Dosage: INSTANT-RELEASE
  2. IBUPROFEN [Concomitant]
     Active Substance: IBUPROFEN
     Indication: Epididymitis
     Dosage: AS NEEDED
  3. ALBUTEROL [Concomitant]
     Active Substance: ALBUTEROL
     Indication: Product used for unknown indication
     Dosage: AS-NEEDED

REACTIONS (13)
  - Neuropathy peripheral [Recovering/Resolving]
  - Fatigue [Recovering/Resolving]
  - Muscular weakness [Recovering/Resolving]
  - Bone pain [Recovering/Resolving]
  - Paraesthesia [Recovering/Resolving]
  - Dizziness [Recovering/Resolving]
  - Asthenia [Recovering/Resolving]
  - Neck pain [Recovering/Resolving]
  - Vertebral foraminal stenosis [Recovering/Resolving]
  - Back pain [Recovering/Resolving]
  - Joint range of motion decreased [Recovering/Resolving]
  - Hypoaesthesia [Recovering/Resolving]
  - Tendon disorder [Recovering/Resolving]
